FAERS Safety Report 6424032-7 (Version None)
Quarter: 2009Q4

REPORT INFORMATION
  Report Type: 
  Country: None (occurrence: None)
  Receive Date: 20091030
  Receipt Date: 20091030
  Transmission Date: 20100525
  Serious: Yes (Hospitalization)
  Sender: FDA-Public Use
  Company Number: None

PATIENT
  Age: 21 Year
  Sex: Female
  Weight: 79.3795 kg

DRUGS (1)
  1. NUVARING [Suspect]
     Indication: CONTRACEPTION
     Dosage: 0.015MG PER DAY DAILY VAG
     Route: 067
     Dates: start: 20080207, end: 20080301

REACTIONS (1)
  - PULMONARY THROMBOSIS [None]
